FAERS Safety Report 10883827 (Version 2)
Quarter: 2015Q1

REPORT INFORMATION
  Report Type: Spontaneous
  Country: US (occurrence: US)
  Receive Date: 20150304
  Receipt Date: 20150320
  Transmission Date: 20150721
  Serious: Yes (Other)
  Sender: FDA-Public Use
  Company Number: US-ROCHE-1546393

PATIENT
  Age: 52 Year
  Sex: Female

DRUGS (1)
  1. TAMIFLU [Suspect]
     Active Substance: OSELTAMIVIR PHOSPHATE
     Indication: INFLUENZA
     Route: 048
     Dates: start: 20150213, end: 20150214

REACTIONS (7)
  - Blindness transient [Unknown]
  - Delirium [Recovered/Resolved]
  - Visual impairment [Unknown]
  - Abnormal behaviour [Unknown]
  - Blindness transient [Recovered/Resolved]
  - Hallucination, visual [Recovered/Resolved]
  - Cognitive disorder [Unknown]

NARRATIVE: CASE EVENT DATE: 20150213
